FAERS Safety Report 12209668 (Version 10)
Quarter: 2019Q2

REPORT INFORMATION
  Report Type: Spontaneous
  Country: CA (occurrence: CA)
  Receive Date: 20160325
  Receipt Date: 20190605
  Transmission Date: 20190711
  Serious: Yes (Hospitalization, Other)
  Sender: FDA-Public Use
  Company Number: CA-ROCHE-1730798

PATIENT
  Age: 54 Year
  Sex: Male

DRUGS (25)
  1. XOLAIR [Suspect]
     Active Substance: OMALIZUMAB
     Dosage: UNK
     Route: 058
     Dates: start: 20160628
  2. SINGULAIR [Concomitant]
     Active Substance: MONTELUKAST SODIUM
     Indication: ASTHMA
     Dosage: UNK
     Route: 065
  3. ASPIRIN [ACETYLSALICYLIC ACID] [Concomitant]
     Active Substance: ASPIRIN
  4. XOLAIR [Suspect]
     Active Substance: OMALIZUMAB
     Dosage: UNK
     Route: 058
     Dates: start: 20161019
  5. TWYNSTA [Concomitant]
     Active Substance: AMLODIPINE BESYLATE\TELMISARTAN
     Indication: HYPERTENSION
     Dosage: 1 DF, QD
     Route: 048
     Dates: start: 2009
  6. ASAPHEN [Concomitant]
     Active Substance: ASPIRIN
     Indication: PRODUCT USED FOR UNKNOWN INDICATION
     Dosage: 80 MG, QD
     Route: 065
  7. XOLAIR [Suspect]
     Active Substance: OMALIZUMAB
     Indication: ASTHMA
     Dosage: 300 MG, Q 4 WEEKS
     Route: 058
     Dates: start: 20160106
  8. XOLAIR [Suspect]
     Active Substance: OMALIZUMAB
     Dosage: UNK
     Route: 058
     Dates: start: 20160302
  9. SYMBICORT [Concomitant]
     Active Substance: BUDESONIDE\FORMOTEROL FUMARATE DIHYDRATE
     Indication: ASTHMA
     Dosage: 200 UG, TID
     Route: 065
  10. XOLAIR [Suspect]
     Active Substance: OMALIZUMAB
     Dosage: UNK
     Route: 058
     Dates: start: 20160405
  11. XOLAIR [Suspect]
     Active Substance: OMALIZUMAB
     Dosage: UNK
     Route: 058
     Dates: start: 20160531
  12. XOLAIR [Suspect]
     Active Substance: OMALIZUMAB
     Dosage: UNK
     Route: 058
     Dates: start: 20160315
  13. XOLAIR [Suspect]
     Active Substance: OMALIZUMAB
     Dosage: UNK
     Route: 058
     Dates: start: 20161115
  14. AMLODIPINE [Concomitant]
     Active Substance: AMLODIPINE BESYLATE
     Indication: PRODUCT USED FOR UNKNOWN INDICATION
     Dosage: 10 MG, QD
     Route: 065
  15. ACTONEL [Concomitant]
     Active Substance: RISEDRONATE SODIUM
     Indication: PRODUCT USED FOR UNKNOWN INDICATION
     Dosage: QW
     Route: 065
  16. XOLAIR [Suspect]
     Active Substance: OMALIZUMAB
     Dosage: UNK
     Route: 058
     Dates: start: 20161115, end: 20161115
  17. VENTOLIN [Concomitant]
     Active Substance: ALBUTEROL SULFATE
     Indication: ASTHMA
     Dosage: 100 UG, BIW
     Route: 065
  18. SPIRIVA [Concomitant]
     Active Substance: TIOTROPIUM BROMIDE MONOHYDRATE
     Route: 055
     Dates: start: 2009
  19. ZENHALE [Concomitant]
     Active Substance: FORMOTEROL FUMARATE\MOMETASONE FUROATE
     Indication: ASTHMA
     Dosage: 2 DF, BID
     Route: 055
     Dates: start: 201905
  20. UNIPHYL [Concomitant]
     Active Substance: THEOPHYLLINE ANHYDROUS
     Indication: PRODUCT USED FOR UNKNOWN INDICATION
     Dosage: 600 MG, QD
     Route: 065
  21. PERINDOPRIL [Concomitant]
     Active Substance: PERINDOPRIL
     Indication: PRODUCT USED FOR UNKNOWN INDICATION
     Dosage: 8 MG, QD
     Route: 065
  22. SPIRIVA [Concomitant]
     Active Substance: TIOTROPIUM BROMIDE MONOHYDRATE
     Indication: ASTHMA
     Dosage: UNK
     Route: 065
  23. XOLAIR [Suspect]
     Active Substance: OMALIZUMAB
     Dosage: UNK
     Route: 058
     Dates: start: 20160726
  24. VENTOLIN [Concomitant]
     Active Substance: ALBUTEROL SULFATE
     Dosage: PRN
     Route: 055
  25. SINGULAIR [Concomitant]
     Active Substance: MONTELUKAST SODIUM
     Route: 048
     Dates: start: 2004

REACTIONS (14)
  - Asthma [Unknown]
  - Pallor [Unknown]
  - Body temperature decreased [Unknown]
  - Feeling abnormal [Unknown]
  - Blood pressure increased [Unknown]
  - Nasopharyngitis [Recovering/Resolving]
  - Neck pain [Unknown]
  - Headache [Unknown]
  - Vision blurred [Unknown]
  - Cough [Recovered/Resolved]
  - Secretion discharge [Unknown]
  - Weight decreased [Unknown]
  - Dyspnoea exertional [Unknown]
  - Transient ischaemic attack [Unknown]

NARRATIVE: CASE EVENT DATE: 20160107
